FAERS Safety Report 24740363 (Version 1)
Quarter: 2024Q4

REPORT INFORMATION
  Report Type: Report from Study
  Country: US (occurrence: US)
  Receive Date: 20241216
  Receipt Date: 20241216
  Transmission Date: 20250115
  Serious: Yes (Death)
  Sender: ABBVIE
  Company Number: US-ABBVIE-6046868

PATIENT
  Sex: Male

DRUGS (1)
  1. RINVOQ [Suspect]
     Active Substance: UPADACITINIB
     Indication: Psoriatic arthropathy
     Dosage: FORM STRENGTH: 15 MG
     Route: 048
     Dates: start: 20231117

REACTIONS (4)
  - Neoplasm malignant [Fatal]
  - Incorrect route of product administration [Unknown]
  - Wrong technique in product usage process [Unknown]
  - Gastrointestinal tube insertion [Unknown]
